FAERS Safety Report 9222749 (Version 1)
Quarter: 2013Q2

REPORT INFORMATION
  Report Type: Spontaneous
  Country: IT (occurrence: IT)
  Receive Date: 20130410
  Receipt Date: 20130410
  Transmission Date: 20140414
  Serious: Yes (Hospitalization)
  Sender: FDA-Public Use
  Company Number: IT-PFIZER INC-2013112801

PATIENT
  Age: 32 Year
  Sex: Female

DRUGS (3)
  1. MISOFENAC [Suspect]
     Dosage: 9 DF, DAILY
     Route: 048
     Dates: start: 20130104, end: 20130104
  2. TACHIPIRINA [Suspect]
     Dosage: 2000 MG, DAILY
     Route: 048
     Dates: start: 20130104, end: 20130104
  3. ESCITALOPRAM OXALATE [Suspect]
     Dosage: 360 MG, UNK
     Route: 048
     Dates: start: 20130104, end: 20130104

REACTIONS (6)
  - Headache [Recovering/Resolving]
  - Pain in extremity [Recovering/Resolving]
  - Tachycardia [Recovering/Resolving]
  - Vomiting [Recovering/Resolving]
  - Drug abuse [Recovering/Resolving]
  - Intentional self-injury [Recovering/Resolving]
